FAERS Safety Report 7164436-0 (Version None)
Quarter: 2010Q4

REPORT INFORMATION
  Report Type: 
  Country: None (occurrence: None)
  Receive Date: 20101123
  Receipt Date: 20100830
  Transmission Date: 20110411
  Serious: No
  Sender: FDA-Public Use
  Company Number: 018095

PATIENT
  Sex: Female
  Weight: 62.6 kg

DRUGS (3)
  1. CIMZIA [Suspect]
     Indication: CROHN'S DISEASE
     Dosage: 400 MG EVERY 28 DAYS SUBCUTANEOUS
     Route: 058
     Dates: start: 20090201
  2. ASACOL [Concomitant]
  3. DIOVAN [Concomitant]

REACTIONS (1)
  - INJECTION SITE URTICARIA [None]
